FAERS Safety Report 5797450-8 (Version None)
Quarter: 2008Q2

REPORT INFORMATION
  Report Type: 
  Country: None (occurrence: None)
  Receive Date: 20080630
  Receipt Date: 20080616
  Transmission Date: 20081010
  Serious: Yes (Hospitalization)
  Sender: FDA-Public Use
  Company Number: 8033547

PATIENT
  Age: 23 Year
  Sex: Male

DRUGS (2)
  1. LORTAB [Suspect]
     Indication: PAIN
  2. PREDNISONE TAB [Suspect]

REACTIONS (13)
  - ABSCESS [None]
  - ARTHRITIS BACTERIAL [None]
  - BLOOD CULTURE POSITIVE [None]
  - CHILLS [None]
  - GAIT DISTURBANCE [None]
  - HYPERHIDROSIS [None]
  - JOINT EFFUSION [None]
  - JOINT RANGE OF MOTION DECREASED [None]
  - MUSCLE DISORDER [None]
  - MUSCLE RUPTURE [None]
  - OSTEOMYELITIS [None]
  - SKIN WARM [None]
  - STAPHYLOCOCCAL INFECTION [None]
